FAERS Safety Report 18633415 (Version 1)
Quarter: 2020Q4

REPORT INFORMATION
  Report Type: Spontaneous
  Country: US (occurrence: US)
  Receive Date: 20201218
  Receipt Date: 20201218
  Transmission Date: 20210114
  Serious: Yes (Death, Hospitalization, Other)
  Sender: FDA-Public Use
  Company Number: US-PFIZER INC-2020494618

PATIENT
  Age: 76 Year
  Sex: Female
  Weight: 40.8 kg

DRUGS (24)
  1. VORICONAZOLE. [Suspect]
     Active Substance: VORICONAZOLE
     Dosage: UNK
  2. BIOTENE (PASTE) [Suspect]
     Active Substance: SODIUM MONOFLUOROPHOSPHATE
     Dosage: UNK
  3. FERROUS SULFATE. [Concomitant]
     Active Substance: FERROUS SULFATE
     Dosage: 325 MG, 2X/DAY
  4. BISACODYL. [Concomitant]
     Active Substance: BISACODYL
     Dosage: 5 MG, AS NEEDED
  5. MIDODRINE [Concomitant]
     Active Substance: MIDODRINE
     Dosage: 10 MG, 2X/DAY
  6. ZOSYN [Suspect]
     Active Substance: PIPERACILLIN SODIUM\TAZOBACTAM SODIUM
     Dosage: UNK
  7. MIDODRINE [Concomitant]
     Active Substance: MIDODRINE
     Dosage: 2.5 MG, 2X/DAY
  8. PILOCARPINE. [Concomitant]
     Active Substance: PILOCARPINE
     Dosage: 5 MG, 3X/DAY
     Route: 048
  9. FIRDAPSE [Suspect]
     Active Substance: AMIFAMPRIDINE PHOSPHATE
     Dosage: 80 MG, DAILY (10 MG, 8X/DAY, ORAL)
     Route: 048
     Dates: start: 2019, end: 2019
  10. MIDODRINE [Concomitant]
     Active Substance: MIDODRINE
     Dosage: 10 MG, 3X/DAY
     Route: 048
  11. PANTOPRAZOLE [Concomitant]
     Active Substance: PANTOPRAZOLE
     Dosage: 20 MG, DAILY
  12. TYLENOL [Concomitant]
     Active Substance: ACETAMINOPHEN
     Dosage: 325 MG, AS NEEDED
  13. DULCOLAX (BISACODYL) [Concomitant]
     Active Substance: BISACODYL
     Dosage: UNK UNK, AS NEEDED
  14. FIRDAPSE [Suspect]
     Active Substance: AMIFAMPRIDINE PHOSPHATE
     Indication: MYASTHENIC SYNDROME
     Dosage: 80 MG, DAILY (10 MG, 8X/DAY)
     Dates: start: 20190208, end: 2019
  15. FIRDAPSE [Suspect]
     Active Substance: AMIFAMPRIDINE PHOSPHATE
     Dosage: 20 MG, 3X/DAY
     Dates: start: 2019, end: 2019
  16. FIRDAPSE [Suspect]
     Active Substance: AMIFAMPRIDINE PHOSPHATE
     Dosage: 80 MG, DAILY (10 MG, 8X/DAY)
     Dates: start: 2019, end: 2019
  17. FIRDAPSE [Suspect]
     Active Substance: AMIFAMPRIDINE PHOSPHATE
     Dosage: 20 MG, 4X/DAY
     Dates: start: 2019, end: 2019
  18. FIRDAPSE [Suspect]
     Active Substance: AMIFAMPRIDINE PHOSPHATE
     Dosage: 80 MG, DAILY (10 MG, 8X/DAY, ORAL)
     Route: 048
     Dates: start: 2019, end: 2019
  19. XARELTO [Suspect]
     Active Substance: RIVAROXABAN
     Dosage: UNK
  20. PANTOPRAZOLE [Concomitant]
     Active Substance: PANTOPRAZOLE
     Dosage: 40 MG, DAILY
  21. BREO ELLIPTA [Concomitant]
     Active Substance: FLUTICASONE FUROATE\VILANTEROL TRIFENATATE
     Dosage: UNK
  22. MIRTAZAPINE. [Concomitant]
     Active Substance: MIRTAZAPINE
     Dosage: UNK
     Dates: end: 201910
  23. REMERON [Concomitant]
     Active Substance: MIRTAZAPINE
     Dosage: 15 MG, 1X/DAY (2.5 MG 2X/DAY)
  24. BREO ELLIPTA [Concomitant]
     Active Substance: FLUTICASONE FUROATE\VILANTEROL TRIFENATATE
     Dosage: UNK

REACTIONS (51)
  - Pneumonia aspiration [Unknown]
  - Decreased appetite [Unknown]
  - Osteopenia [Unknown]
  - Gait inability [Unknown]
  - Dehydration [Unknown]
  - Rhabdomyolysis [Unknown]
  - Septic shock [Unknown]
  - Fatigue [Unknown]
  - Swollen tongue [Unknown]
  - Diplopia [Unknown]
  - Fall [Unknown]
  - Respiratory failure [Unknown]
  - Vomiting [Unknown]
  - Lung infiltration [Unknown]
  - Asthenia [Unknown]
  - Back pain [Unknown]
  - Eosinophilia [Unknown]
  - Pneumonia [Unknown]
  - Acute coronary syndrome [Unknown]
  - Fracture [Unknown]
  - Dyspnoea exertional [Unknown]
  - Appendicitis [Unknown]
  - Pyrexia [Unknown]
  - Hypophagia [Unknown]
  - Sinus rhythm [Unknown]
  - Leukocytosis [Unknown]
  - Faeces discoloured [Unknown]
  - Haemorrhage intracranial [Unknown]
  - Night sweats [Unknown]
  - Normocytic anaemia [Unknown]
  - Arthralgia [Unknown]
  - Pneumonia fungal [Unknown]
  - Failure to thrive [Unknown]
  - Deep vein thrombosis [Unknown]
  - Nausea [Unknown]
  - Pleural effusion [Unknown]
  - Speech disorder [Unknown]
  - Constipation [Unknown]
  - Death [Fatal]
  - Urinary tract infection bacterial [Unknown]
  - Nephrolithiasis [Unknown]
  - Renal failure [Unknown]
  - Small cell lung cancer [Unknown]
  - Cough [Unknown]
  - Dyspnoea [Unknown]
  - Oropharyngeal pain [Unknown]
  - Hypotension [Unknown]
  - Hypophosphataemia [Unknown]
  - Hypomagnesaemia [Unknown]
  - Pyuria [Unknown]
  - Diarrhoea [Unknown]

NARRATIVE: CASE EVENT DATE: 20200808
